FAERS Safety Report 10763325 (Version 2)
Quarter: 2015Q1

REPORT INFORMATION
  Report Type: Spontaneous
  Country: US (occurrence: US)
  Receive Date: 20150204
  Receipt Date: 20150306
  Transmission Date: 20150721
  Serious: Yes (Hospitalization, Other)
  Sender: FDA-Public Use
  Company Number: US-GLAXOSMITHKLINE-US2015010704

PATIENT
  Age: 82 Year
  Sex: Male

DRUGS (7)
  1. ASPIRIN. [Concomitant]
     Active Substance: ASPIRIN
  2. LIPITOR [Concomitant]
     Active Substance: ATORVASTATIN CALCIUM
  3. PLAVIX [Concomitant]
     Active Substance: CLOPIDOGREL BISULFATE
  4. AVODART [Suspect]
     Active Substance: DUTASTERIDE
     Indication: URINE OUTPUT
  5. METOPROLOL [Concomitant]
     Active Substance: METOPROLOL
  6. AVODART [Suspect]
     Active Substance: DUTASTERIDE
     Indication: PROSTATOMEGALY
     Dosage: 0.5MG, 1D
     Route: 048
     Dates: start: 2000
  7. FLOMAX [Concomitant]
     Active Substance: TAMSULOSIN HYDROCHLORIDE

REACTIONS (21)
  - Cerebrovascular accident [Recovering/Resolving]
  - Cardiac operation [Recovered/Resolved]
  - Intensive care [Recovered/Resolved]
  - Cataract [Recovered/Resolved]
  - Vomiting [Recovered/Resolved]
  - Transurethral prostatectomy [Recovered/Resolved]
  - Coronary artery occlusion [Recovered/Resolved]
  - Speech disorder [Recovered/Resolved]
  - Arterial occlusive disease [Recovered/Resolved]
  - Libido decreased [Unknown]
  - Cystitis [Recovered/Resolved with Sequelae]
  - Tooth extraction [Recovered/Resolved]
  - Vascular graft [Recovered/Resolved]
  - Postoperative wound infection [Recovered/Resolved]
  - Vision blurred [Recovered/Resolved]
  - Sepsis [Recovered/Resolved]
  - Urinary tract infection [Recovered/Resolved]
  - Coronary arterial stent insertion [Recovered/Resolved]
  - Dysuria [Recovered/Resolved]
  - Myocardial infarction [Recovered/Resolved]
  - Cataract operation [Recovered/Resolved]

NARRATIVE: CASE EVENT DATE: 2005
